FAERS Safety Report 12187863 (Version 1)
Quarter: 2016Q1

REPORT INFORMATION
  Report Type: Spontaneous
  Country: US (occurrence: US)
  Receive Date: 20160317
  Receipt Date: 20160317
  Transmission Date: 20160526
  Serious: No
  Sender: FDA-Public Use
  Company Number: US-ACTELION PHARMACEUTICALS US, INC.-A-US2016-132926

PATIENT
  Age: 77 Year
  Sex: Female

DRUGS (12)
  1. OPSUMIT [Suspect]
     Active Substance: MACITENTAN
     Indication: PULMONARY ARTERIAL HYPERTENSION
     Dosage: 10 MG, QD
     Route: 048
  2. OMEPRAZOLE. [Concomitant]
     Active Substance: OMEPRAZOLE
  3. TAGAMET [Concomitant]
     Active Substance: CIMETIDINE
  4. LEVOTHYROXINE. [Concomitant]
     Active Substance: LEVOTHYROXINE
  5. LASIX [Concomitant]
     Active Substance: FUROSEMIDE
  6. CENTRUM [Concomitant]
     Active Substance: VITAMINS
  7. KLONOPIN [Concomitant]
     Active Substance: CLONAZEPAM
  8. NEURONTIN [Concomitant]
     Active Substance: GABAPENTIN
  9. CARAFATE [Concomitant]
     Active Substance: SUCRALFATE
  10. PHENERGAN [Concomitant]
     Active Substance: PROMETHAZINE HYDROCHLORIDE
  11. LOVENOX [Concomitant]
     Active Substance: ENOXAPARIN SODIUM
  12. OMEGA 3 [Concomitant]
     Active Substance: OMEGA-3 FATTY ACIDS

REACTIONS (2)
  - Nasal dryness [Not Recovered/Not Resolved]
  - Nasal congestion [Not Recovered/Not Resolved]

NARRATIVE: CASE EVENT DATE: 20160303
